FAERS Safety Report 17899331 (Version 1)
Quarter: 2020Q2

REPORT INFORMATION
  Report Type: Report from Study
  Country: CA (occurrence: CA)
  Receive Date: 20200616
  Receipt Date: 20200616
  Transmission Date: 20200714
  Serious: Yes (Other)
  Sender: FDA-Public Use
  Company Number: PHHY2016CA118738

PATIENT
  Age: 49 Year
  Sex: Female

DRUGS (1)
  1. GILENYA [Suspect]
     Active Substance: FINGOLIMOD HYDROCHLORIDE
     Indication: MULTIPLE SCLEROSIS
     Dosage: UNK
     Route: 048
     Dates: start: 20151008, end: 20190531

REACTIONS (4)
  - Asthenia [Unknown]
  - Balance disorder [Unknown]
  - Expanded disability status scale score increased [Unknown]
  - Ataxia [Unknown]

NARRATIVE: CASE EVENT DATE: 20160204
